FAERS Safety Report 7466911-8 (Version None)
Quarter: 2011Q2

REPORT INFORMATION
  Report Type: 
  Country: None (occurrence: None)
  Receive Date: 20110428
  Receipt Date: 20110426
  Transmission Date: 20111010
  Serious: Yes (Other)
  Sender: FDA-Public Use
  Company Number: GRT 2011-10765

PATIENT
  Age: 34 Year
  Sex: Female
  Weight: 69 kg

DRUGS (2)
  1. SUMATRIPTAN SUCCINATE [Concomitant]
  2. LIDODERM [Suspect]
     Indication: BACK PAIN
     Dosage: 20 PATCHES A DAY01
     Dates: start: 20080101

REACTIONS (3)
  - CIRCUMSTANCE OR INFORMATION CAPABLE OF LEADING TO MEDICATION ERROR [None]
  - INTENTIONAL DRUG MISUSE [None]
  - DRUG ABUSE [None]
